FAERS Safety Report 13249048 (Version 1)
Quarter: 2017Q1

REPORT INFORMATION
  Report Type: Spontaneous
  Country: US (occurrence: US)
  Receive Date: 20170218
  Receipt Date: 20170218
  Transmission Date: 20170428
  Serious: No
  Sender: FDA-Public Use
  Company Number: US-ALLERGAN-1652368US

PATIENT
  Age: 64 Year
  Sex: Female
  Weight: 61.29 kg

DRUGS (3)
  1. RESTASIS [Suspect]
     Active Substance: CYCLOSPORINE
     Indication: EYE PRURITUS
     Dosage: 2 GTT, BID
     Route: 047
     Dates: start: 20160222, end: 20160328
  2. VYTORIN [Concomitant]
     Active Substance: EZETIMIBE\SIMVASTATIN
     Indication: BLOOD CHOLESTEROL INCREASED
     Dosage: UNK
  3. SYNTHROID [Concomitant]
     Active Substance: LEVOTHYROXINE SODIUM
     Indication: THYROID DISORDER

REACTIONS (5)
  - Sinus disorder [Recovered/Resolved]
  - Sputum normal [Recovered/Resolved]
  - Vertigo [Recovered/Resolved]
  - Eye discharge [Recovered/Resolved]
  - Nasopharyngitis [Recovered/Resolved]

NARRATIVE: CASE EVENT DATE: 20160226
